FAERS Safety Report 26156844 (Version 1)
Quarter: 2025Q4

REPORT INFORMATION
  Report Type: Spontaneous
  Country: US (occurrence: US)
  Receive Date: 20251215
  Receipt Date: 20251215
  Transmission Date: 20260117
  Serious: No
  Sender: ALCON
  Company Number: US-ALCON LABORATORIES-ALC2025US006856

PATIENT
  Sex: Female

DRUGS (1)
  1. ACOLTREMON [Suspect]
     Active Substance: ACOLTREMON
     Indication: Product used for unknown indication
     Dosage: INSTILL 1 DROP INTO BOTH EYES TWICE A DAY APPROXIMATELY 12 HOURS APART
     Route: 047
     Dates: start: 20251016, end: 20251116

REACTIONS (3)
  - Eye irritation [Unknown]
  - Visual impairment [Unknown]
  - Dry eye [Unknown]
